FAERS Safety Report 11743800 (Version 1)
Quarter: 2015Q4

REPORT INFORMATION
  Report Type: Spontaneous
  Country: US (occurrence: US)
  Receive Date: 20151116
  Receipt Date: 20151116
  Transmission Date: 20160304
  Serious: Yes (Hospitalization)
  Sender: FDA-Public Use
  Company Number: US-UCBSA-2015036240

PATIENT
  Sex: Female

DRUGS (2)
  1. VIMPAT [Suspect]
     Active Substance: LACOSAMIDE
     Indication: SEIZURE
     Dosage: 100 MG/4 TAB: 400 MG DAILY
  2. KEPPRA [Suspect]
     Active Substance: LEVETIRACETAM
     Indication: SEIZURE
     Dosage: 500 MG /9 TAB: DAILY DOSE 4500 MG

REACTIONS (8)
  - Overdose [Unknown]
  - Off label use [Unknown]
  - Mood swings [Recovering/Resolving]
  - Anger [Recovering/Resolving]
  - Depression [Unknown]
  - Anxiety [Recovering/Resolving]
  - Seizure [Unknown]
  - Abnormal behaviour [Recovering/Resolving]
